FAERS Safety Report 5503299-3 (Version None)
Quarter: 2007Q4

REPORT INFORMATION
  Report Type: 
  Country: None (occurrence: None)
  Receive Date: 20071031
  Receipt Date: 20071024
  Transmission Date: 20080405
  Serious: Yes (Other)
  Sender: FDA-Public Use
  Company Number: US-SHR-US-2007-031266

PATIENT
  Age: 31 Year
  Sex: Female
  Weight: 82 kg

DRUGS (2)
  1. MIRENA [Suspect]
     Indication: CONTRACEPTION
     Dosage: 20 A?G/DAY, CONT
     Route: 015
     Dates: start: 20070814
  2. MINOCYCLINE HCL [Suspect]
     Indication: ACNE
     Dosage: 50 MG, 1X/DAY
     Route: 048
     Dates: start: 20070721, end: 20070810

REACTIONS (3)
  - AMENORRHOEA [None]
  - COMPLICATION OF DEVICE INSERTION [None]
  - ERYTHEMA NODOSUM [None]
